FAERS Safety Report 6618799-2 (Version None)
Quarter: 2010Q1

REPORT INFORMATION
  Report Type: 
  Country: None (occurrence: None)
  Receive Date: 20100305
  Receipt Date: 20100305
  Transmission Date: 20100710
  Serious: No
  Sender: FDA-Public Use
  Company Number: None

PATIENT
  Sex: Female
  Weight: 74.8435 kg

DRUGS (2)
  1. HYDROCODONE BITARTRATE AND ACETAMINOPHEN [Suspect]
     Indication: TOOTHACHE
     Dates: start: 20100210
  2. AMOXICILLIN [Suspect]
     Dates: start: 20100210

REACTIONS (1)
  - MALAISE [None]
